FAERS Safety Report 17110607 (Version 2)
Quarter: 2019Q4

REPORT INFORMATION
  Report Type: Spontaneous
  Country: US (occurrence: US)
  Receive Date: 20191204
  Receipt Date: 20191211
  Transmission Date: 20200122
  Serious: No
  Sender: FDA-Public Use
  Company Number: US-PFIZER INC-2019520687

PATIENT
  Age: 44 Year
  Sex: Female

DRUGS (1)
  1. EUCRISA [Suspect]
     Active Substance: CRISABOROLE
     Indication: CONDITION AGGRAVATED
     Dosage: UNK UNK, AS NEEDED (APPLY TO AFFECTED AREAS TWICE A DAY AS NEEDED)

REACTIONS (1)
  - Eyelid irritation [Unknown]
